FAERS Safety Report 23073647 (Version 3)
Quarter: 2023Q4

REPORT INFORMATION
  Report Type: Spontaneous
  Country: US (occurrence: US)
  Receive Date: 20231017
  Receipt Date: 20231222
  Transmission Date: 20240110
  Serious: Yes (Other)
  Sender: FDA-Public Use
  Company Number: US-HIKMA PHARMACEUTICALS USA INC.-US-H14001-23-65875

PATIENT

DRUGS (11)
  1. ASPARAGINASE [Suspect]
     Active Substance: ASPARAGINASE
     Indication: Acute lymphocytic leukaemia
     Dosage: 100 MILLIGRAM X 6 DOSES
     Route: 042
     Dates: start: 20230616
  2. MERCAPTOPURINE [Suspect]
     Active Substance: MERCAPTOPURINE
     Indication: Acute lymphocytic leukaemia
     Dosage: 150 MG 6  DAYS/WEEL, 175 MG 1 DAY/WEEK
     Route: 048
     Dates: start: 20230822, end: 20230908
  3. METHOTREXATE [Suspect]
     Active Substance: METHOTREXATE
     Dosage: 41.25 MILLIGRAM, WEEKLY
     Route: 048
     Dates: start: 20230829, end: 20230908
  4. METHOTREXATE [Suspect]
     Active Substance: METHOTREXATE
     Indication: Acute lymphocytic leukaemia
     Dosage: 210 MILLIGRAM
     Route: 048
     Dates: start: 20230615
  5. METHOTREXATE [Suspect]
     Active Substance: METHOTREXATE
     Indication: Acute lymphocytic leukaemia
     Dosage: 2 DOSES
     Route: 037
     Dates: start: 20230615
  6. METHOTREXATE [Suspect]
     Active Substance: METHOTREXATE
     Dosage: 15 MILLIGRAM X 2 DOSES
     Route: 037
     Dates: start: 20230822
  7. METHOTREXATE [Suspect]
     Active Substance: METHOTREXATE
     Dosage: 317 MILLIGRAM X 2 DOSES
     Route: 042
     Dates: start: 20230626
  8. UNSPECIFIED INGREDIENT [Suspect]
     Active Substance: UNSPECIFIED INGREDIENT
     Indication: Acute lymphocytic leukaemia
     Dosage: 100 MILLIGRAM, BID
     Route: 048
     Dates: start: 20230822
  9. VINCRISTINE [Suspect]
     Active Substance: VINCRISTINE
     Indication: Acute lymphocytic leukaemia
     Dosage: 5 DOSES
     Route: 042
     Dates: start: 20230822
  10. LEXAPRO [Concomitant]
     Active Substance: ESCITALOPRAM OXALATE
     Indication: Product used for unknown indication
     Dosage: UNK
     Route: 065
  11. ONDANSETRON [Concomitant]
     Active Substance: ONDANSETRON
     Indication: Product used for unknown indication
     Dosage: UNK
     Route: 065
     Dates: start: 20230830

REACTIONS (24)
  - Hepatic failure [Recovered/Resolved]
  - Febrile neutropenia [Recovered/Resolved]
  - Encephalopathy [Recovered/Resolved]
  - Stomatitis [Recovered/Resolved]
  - Syncope [Recovered/Resolved]
  - Chest pain [Recovered/Resolved]
  - Electrocardiogram QT prolonged [Recovered/Resolved]
  - Oropharyngeal pain [Unknown]
  - Vomiting [Unknown]
  - Mouth ulceration [Unknown]
  - Nausea [Unknown]
  - Fatigue [Unknown]
  - Mental status changes [Unknown]
  - Dizziness [Unknown]
  - Gait disturbance [Unknown]
  - Lethargy [Unknown]
  - Confusional state [Unknown]
  - Haematemesis [Unknown]
  - Alanine aminotransferase increased [Unknown]
  - Aspartate aminotransferase increased [Unknown]
  - Bilirubin conjugated increased [Unknown]
  - Blood bilirubin increased [Unknown]
  - Gamma-glutamyltransferase increased [Unknown]
  - Neutrophil count decreased [Unknown]

NARRATIVE: CASE EVENT DATE: 20230830
